FAERS Safety Report 25438521 (Version 2)
Quarter: 2025Q3

REPORT INFORMATION
  Report Type: Spontaneous
  Country: US (occurrence: US)
  Receive Date: 20250616
  Receipt Date: 20250819
  Transmission Date: 20251020
  Serious: Yes (Hospitalization)
  Sender: SANOFI AVENTIS
  Company Number: US-SA-2025SA168639

PATIENT
  Age: 77 Year
  Sex: Male

DRUGS (3)
  1. DUPIXENT [Suspect]
     Active Substance: DUPILUMAB
     Indication: Chronic obstructive pulmonary disease
     Dosage: 300 MG, QOW
     Route: 058
     Dates: start: 202504
  2. OXYCODONE [Suspect]
     Active Substance: OXYCODONE
     Indication: Pain
     Dates: start: 2025
  3. TRELEGY ELLIPTA [Concomitant]
     Active Substance: FLUTICASONE FUROATE\UMECLIDINIUM BROMIDE\VILANTEROL TRIFENATATE

REACTIONS (15)
  - Hernia [Unknown]
  - Muscular weakness [Unknown]
  - Condition aggravated [Unknown]
  - Constipation [Unknown]
  - Pain [Unknown]
  - Back pain [Unknown]
  - Diarrhoea [Unknown]
  - Dizziness postural [Unknown]
  - Muscle spasms [Recovered/Resolved]
  - Peripheral swelling [Recovering/Resolving]
  - Musculoskeletal stiffness [Unknown]
  - Gait disturbance [Unknown]
  - Condition aggravated [Unknown]
  - Pain in extremity [Unknown]
  - Headache [Unknown]

NARRATIVE: CASE EVENT DATE: 20250101
